FAERS Safety Report 17138872 (Version 1)
Quarter: 2019Q4

REPORT INFORMATION
  Report Type: Report from Study
  Country: US (occurrence: US)
  Receive Date: 20191211
  Receipt Date: 20191211
  Transmission Date: 20200122
  Serious: Yes (Hospitalization)
  Sender: FDA-Public Use
  Company Number: PHHY2019US218024

PATIENT
  Age: 14 Year
  Sex: Female
  Weight: 42.8 kg

DRUGS (6)
  1. MEROPENEM. [Concomitant]
     Active Substance: MEROPENEM
     Indication: MYCOBACTERIUM ABSCESSUS INFECTION
     Dosage: 250 MG, BID
     Route: 055
     Dates: start: 20180906
  2. AMIKACIN. [Concomitant]
     Active Substance: AMIKACIN
     Indication: MYCOBACTERIUM ABSCESSUS INFECTION
     Dosage: 590 MG, QD
     Route: 055
     Dates: start: 20171108
  3. BEDAQUILINE [Concomitant]
     Active Substance: BEDAQUILINE
     Indication: MYCOBACTERIUM ABSCESSUS INFECTION
     Dosage: 200 MG, (MONDAT, WEDNESDAY AND FRIDAY)
     Route: 065
     Dates: start: 20180314
  4. TEDIZOLID [Concomitant]
     Active Substance: TEDIZOLID
     Indication: MYCOBACTERIUM ABSCESSUS INFECTION
     Dosage: 200 MG, BID
     Route: 065
     Dates: start: 20180510
  5. OMADACYCLINE. [Concomitant]
     Active Substance: OMADACYCLINE
     Indication: MYCOBACTERIUM ABSCESSUS INFECTION
     Route: 065
  6. LAMPRENE [Suspect]
     Active Substance: CLOFAZIMINE
     Indication: MYCOBACTERIUM ABSCESSUS INFECTION
     Dosage: 100 MG, UNK
     Route: 048
     Dates: start: 20160516

REACTIONS (3)
  - Staphylococcal infection [Unknown]
  - Infective pulmonary exacerbation of cystic fibrosis [Recovering/Resolving]
  - Pseudomonas infection [Unknown]

NARRATIVE: CASE EVENT DATE: 20190916
